FAERS Safety Report 19940489 (Version 1)
Quarter: 2021Q4

REPORT INFORMATION
  Report Type: Spontaneous
  Country: CN (occurrence: CN)
  Receive Date: 20211011
  Receipt Date: 20211011
  Transmission Date: 20220303
  Serious: Yes (Hospitalization, Other)
  Sender: FDA-Public Use
  Company Number: CN-PFIZER INC-202101275815

PATIENT
  Age: 36 Year
  Sex: Male
  Weight: 60 kg

DRUGS (7)
  1. ZYVOX [Suspect]
     Active Substance: LINEZOLID
     Indication: Pneumonia
     Dosage: 600 MG, 1X/DAY
     Route: 041
     Dates: start: 20210828, end: 20210902
  2. ZYVOX [Suspect]
     Active Substance: LINEZOLID
     Indication: Pneumonia
     Dosage: 0.6 G, 2X/DAY
     Route: 048
     Dates: start: 20210902, end: 20210916
  3. SOLU-MEDROL [Suspect]
     Active Substance: METHYLPREDNISOLONE SODIUM SUCCINATE
     Indication: Pneumonia
     Dosage: 40 MG, 1X/DAY
     Route: 041
     Dates: start: 20210831, end: 20210910
  4. PIPERACILLIN SODIUM\TAZOBACTAM SODIUM [Suspect]
     Active Substance: PIPERACILLIN SODIUM\TAZOBACTAM SODIUM
     Indication: Pneumonia
     Dosage: 4.5 G, 1X/DAY
     Route: 041
     Dates: start: 20210828, end: 20210916
  5. ACETAMINOPHEN\DIHYDROCODEINE BITARTRATE [Suspect]
     Active Substance: ACETAMINOPHEN\DIHYDROCODEINE BITARTRATE
     Indication: Pneumonia
     Dosage: 1 DF, 2X/DAY
     Route: 048
     Dates: start: 20210827, end: 20210916
  6. SODIUM CHLORIDE [Concomitant]
     Active Substance: SODIUM CHLORIDE
     Indication: Vehicle solution use
     Dosage: 100 ML, 1X/DAY
     Route: 041
     Dates: start: 20210828, end: 20210916
  7. SODIUM CHLORIDE [Concomitant]
     Active Substance: SODIUM CHLORIDE
     Dosage: 100 ML, 1X/DAY
     Route: 041
     Dates: start: 20210831, end: 20210910

REACTIONS (4)
  - Transaminases increased [Recovering/Resolving]
  - Condition aggravated [Recovering/Resolving]
  - Hepatic failure [Recovering/Resolving]
  - Off label use [Unknown]

NARRATIVE: CASE EVENT DATE: 20210828
